FAERS Safety Report 13138660 (Version 1)
Quarter: 2017Q1

REPORT INFORMATION
  Report Type: Spontaneous
  Country: US (occurrence: US)
  Receive Date: 20170123
  Receipt Date: 20170123
  Transmission Date: 20170428
  Serious: No
  Sender: FDA-Public Use
  Company Number: US-UNITED THERAPEUTICS-UNT-2016-012276

PATIENT
  Age: 77 Year
  Sex: Male
  Weight: 110.66 kg

DRUGS (3)
  1. OPSUMIT [Concomitant]
     Active Substance: MACITENTAN
     Indication: PRODUCT USED FOR UNKNOWN INDICATION
  2. TYVASO [Suspect]
     Active Substance: TREPROSTINIL
     Indication: PULMONARY ARTERIAL HYPERTENSION
     Dosage: 18-54 MICROGRAMS,QID
     Dates: start: 20160727, end: 20160823
  3. ADCIRCA [Concomitant]
     Active Substance: TADALAFIL
     Indication: PRODUCT USED FOR UNKNOWN INDICATION

REACTIONS (7)
  - Drug dose omission [Unknown]
  - Cough [Unknown]
  - Dizziness [Unknown]
  - Increased tendency to bruise [Unknown]
  - Injury [Unknown]
  - Treatment noncompliance [Unknown]
  - Choking [Unknown]

NARRATIVE: CASE EVENT DATE: 201607
